FAERS Safety Report 8695812 (Version 2)
Quarter: 2013Q4

REPORT INFORMATION
  Report Type: Spontaneous
  Country: US (occurrence: US)
  Receive Date: 20120731
  Receipt Date: 20131108
  Transmission Date: 20140711
  Serious: Yes (Other)
  Sender: FDA-Public Use
  Company Number: US-009507513-1207USA009781

PATIENT
  Age: 58 Year
  Sex: Female

DRUGS (6)
  1. ZOCOR [Suspect]
     Dosage: 20 MG, UNK
     Route: 048
  2. VOLTAREN [Suspect]
     Dosage: 100 MG, QD
     Route: 048
  3. METOJECT [Suspect]
     Dosage: 20 MG, QW
     Route: 058
  4. CALCIUM CARBONATE [Suspect]
     Dosage: 500 MG, UNK
     Route: 048
  5. ACTIQ [Concomitant]
     Dosage: 600 MICROGRAM, QD
     Route: 002
  6. PERIPHERAL OPIOID RECEPTOR ANTAGONIST (UNSPECIFIED) [Concomitant]

REACTIONS (2)
  - Weight decreased [Unknown]
  - Diarrhoea [Unknown]
